FAERS Safety Report 14663624 (Version 1)
Quarter: 2018Q1

REPORT INFORMATION
  Report Type: Spontaneous
  Country: US (occurrence: US)
  Receive Date: 20180319
  Receipt Date: 20180319
  Transmission Date: 20180509
  Serious: Yes (Hospitalization)
  Sender: FDA-Public Use
  Company Number: None

PATIENT
  Sex: Female

DRUGS (1)
  1. CAPECITABINE  500 MG WEST-WARD PHARMACEUTICAL CORP [Suspect]
     Active Substance: CAPECITABINE
     Indication: COLON CANCER
     Dosage: 1000MG EVERY MORNING AND 1500MG FOR 2 WEEKS ON THEN 1 WEEK OFF ORALLY
     Route: 048
     Dates: start: 20171219

REACTIONS (1)
  - Headache [None]
